FAERS Safety Report 13230964 (Version 1)
Quarter: 2017Q1

REPORT INFORMATION
  Report Type: Spontaneous
  Country: CN (occurrence: CN)
  Receive Date: 20170214
  Receipt Date: 20170214
  Transmission Date: 20170428
  Serious: Yes (Disabling)
  Sender: FDA-Public Use
  Company Number: CN-BAYER-2017-026021

PATIENT
  Age: 61 Year
  Sex: Male
  Weight: 58 kg

DRUGS (1)
  1. BAYASPIRIN 100 MG [Suspect]
     Active Substance: ASPIRIN
     Indication: CORONARY ARTERY DISEASE
     Dosage: 10 MG, QD
     Route: 048
     Dates: start: 20161223, end: 20161228

REACTIONS (6)
  - Upper gastrointestinal haemorrhage [Unknown]
  - Palpitations [Unknown]
  - Hyperhidrosis [Unknown]
  - Dizziness [Unknown]
  - Altered state of consciousness [Unknown]
  - Pallor [Unknown]

NARRATIVE: CASE EVENT DATE: 20161228
